FAERS Safety Report 19586426 (Version 1)
Quarter: 2021Q3

REPORT INFORMATION
  Report Type: Report from Study
  Country: US (occurrence: US)
  Receive Date: 20210720
  Receipt Date: 20210720
  Transmission Date: 20211014
  Serious: No
  Sender: FDA-Public Use
  Company Number: NVSC2021US155821

PATIENT
  Age: 42 Year
  Sex: Female
  Weight: 88 kg

DRUGS (2)
  1. KESIMPTA [Suspect]
     Active Substance: OFATUMUMAB
     Indication: MULTIPLE SCLEROSIS
     Dosage: 20 MG, QMO (SOLUTION)
     Route: 058
     Dates: start: 20210707
  2. KESIMPTA [Suspect]
     Active Substance: OFATUMUMAB
     Dosage: 20 MG, QW (SOLUTION)
     Route: 058
     Dates: start: 20210708

REACTIONS (6)
  - Pyrexia [Recovered/Resolved]
  - Influenza like illness [Unknown]
  - Pain [Recovered/Resolved]
  - Feeling abnormal [Unknown]
  - Sluggishness [Recovered/Resolved]
  - Myalgia [Unknown]

NARRATIVE: CASE EVENT DATE: 20210708
